FAERS Safety Report 11643659 (Version 1)
Quarter: 2015Q4

REPORT INFORMATION
  Report Type: Spontaneous
  Country: US (occurrence: US)
  Receive Date: 20151020
  Receipt Date: 20151020
  Transmission Date: 20160304
  Serious: No
  Sender: FDA-Public Use
  Company Number: US-009507513-1510USA006623

PATIENT
  Age: 71 Year
  Sex: Female

DRUGS (15)
  1. JANUMET [Suspect]
     Active Substance: METFORMIN HYDROCHLORIDE\SITAGLIPTIN PHOSPHATE
     Dosage: UNK
     Route: 048
  2. CLOBETASOL PROPIONATE. [Concomitant]
     Active Substance: CLOBETASOL PROPIONATE
  3. SPIRONOLACTONE. [Concomitant]
     Active Substance: SPIRONOLACTONE
  4. ZYRTEC [Concomitant]
     Active Substance: CETIRIZINE HYDROCHLORIDE
  5. ADVIL [Concomitant]
     Active Substance: IBUPROFEN
  6. FUROSEMIDE. [Concomitant]
     Active Substance: FUROSEMIDE
  7. LISINOPRIL. [Concomitant]
     Active Substance: LISINOPRIL
  8. OTEZLA [Suspect]
     Active Substance: APREMILAST
     Indication: PSORIASIS
     Dosage: 30 MG, 2 IN 1 D
     Route: 048
     Dates: start: 20150119
  9. ALBUTEROL. [Concomitant]
     Active Substance: ALBUTEROL
  10. SINGULAIR [Concomitant]
     Active Substance: MONTELUKAST SODIUM
  11. PROVENTIL [Concomitant]
     Active Substance: ALBUTEROL
  12. WARFARIN [Concomitant]
     Active Substance: WARFARIN
  13. KLOR-CON [Concomitant]
     Active Substance: POTASSIUM CHLORIDE
  14. ZOCOR [Concomitant]
     Active Substance: SIMVASTATIN
  15. OTEZLA [Suspect]
     Active Substance: APREMILAST
     Dosage: 30 MG, AM
     Route: 048
     Dates: start: 20150210

REACTIONS (1)
  - Diarrhoea [Recovered/Resolved]

NARRATIVE: CASE EVENT DATE: 20150119
